FAERS Safety Report 9862237 (Version 2)
Quarter: 2014Q1

REPORT INFORMATION
  Report Type: Spontaneous
  Country: JP (occurrence: JP)
  Receive Date: 20140203
  Receipt Date: 20140203
  Transmission Date: 20141002
  Serious: Yes (Other)
  Sender: FDA-Public Use
  Company Number: JP-JNJFOC-20131116788

PATIENT
  Sex: Male

DRUGS (9)
  1. GRACEPTOR [Suspect]
     Indication: RENAL TRANSPLANT
     Route: 048
  2. GRACEPTOR [Suspect]
     Indication: RENAL TRANSPLANT
     Route: 048
  3. CELLCEPT [Suspect]
     Indication: PRODUCT USED FOR UNKNOWN INDICATION
     Route: 048
  4. LYRICA [Suspect]
     Indication: POST HERPETIC NEURALGIA
     Dosage: DURATION 61 DAYS;
     Route: 048
  5. CYMBALTA [Suspect]
     Indication: POST HERPETIC NEURALGIA
     Dosage: DURATION 61 DAYS
     Route: 048
  6. TRAMADOL/APAP [Suspect]
     Indication: POST HERPETIC NEURALGIA
     Dosage: DURATION 61 DAYS
     Route: 048
  7. MEDROL [Concomitant]
     Route: 065
  8. URIEF [Concomitant]
     Route: 065
  9. EURODIN [Concomitant]
     Route: 048

REACTIONS (12)
  - Convulsion [Not Recovered/Not Resolved]
  - Delirium [Unknown]
  - Herpes zoster [Not Recovered/Not Resolved]
  - Paraesthesia [Unknown]
  - Cold sweat [Unknown]
  - Pruritus [Unknown]
  - Pollakiuria [Unknown]
  - Gynaecomastia [Unknown]
  - Erythema [Unknown]
  - Haemorrhage subcutaneous [Unknown]
  - Depersonalisation [Unknown]
  - Dystonia [Unknown]
